FAERS Safety Report 8014409-0 (Version None)
Quarter: 2011Q4

REPORT INFORMATION
  Report Type: 
  Country: None (occurrence: None)
  Receive Date: 20111229
  Receipt Date: 20111220
  Transmission Date: 20120403
  Serious: Yes (Hospitalization)
  Sender: FDA-Public Use
  Company Number: US-ELI_LILLY_AND_COMPANY-US201112006579

PATIENT
  Sex: Male

DRUGS (1)
  1. ZYPREXA RELPREVV [Suspect]
     Dosage: 210 MG, UNKNOWN
     Route: 030
     Dates: start: 20110622

REACTIONS (2)
  - ADVERSE EVENT [None]
  - GASTROINTESTINAL DISORDER [None]
